FAERS Safety Report 10616488 (Version 2)
Quarter: 2014Q4

REPORT INFORMATION
  Report Type: Report from Study
  Country: BR (occurrence: BR)
  Receive Date: 20141201
  Receipt Date: 20141201
  Transmission Date: 20150529
  Serious: Yes (Death, Hospitalization, Other)
  Sender: FDA-Public Use
  Company Number: BR-BRISTOL-MYERS SQUIBB COMPANY-21436456

PATIENT
  Age: 55 Year
  Sex: Male
  Weight: 56 kg

DRUGS (1)
  1. ERBITUX [Suspect]
     Active Substance: CETUXIMAB
     Indication: COLORECTAL CANCER METASTATIC
     Dosage: THERAPY INITIATED IN SEP-2013.THERAPY RESUMED IN AUG-2014.RECENT INFUSION: 28-AUG-2014.
     Dates: start: 201309

REACTIONS (7)
  - Intestinal perforation [Fatal]
  - Wound [Not Recovered/Not Resolved]
  - Immunodeficiency [Unknown]
  - Erythema [Not Recovered/Not Resolved]
  - Dry skin [Unknown]
  - Acne [Unknown]
  - Lip haemorrhage [Not Recovered/Not Resolved]

NARRATIVE: CASE EVENT DATE: 201408
